FAERS Safety Report 9624802 (Version 1)
Quarter: 2013Q4

REPORT INFORMATION
  Report Type: Spontaneous
  Country: TR (occurrence: TR)
  Receive Date: 20131015
  Receipt Date: 20131015
  Transmission Date: 20140711
  Serious: Yes (Hospitalization, Other)
  Sender: FDA-Public Use
  Company Number: TR-MYLANLABS-2013S1022669

PATIENT
  Age: 46 Year
  Sex: Female

DRUGS (11)
  1. DIAZEPAM [Suspect]
     Indication: CONVULSION
     Route: 050
  2. LITHIUM [Suspect]
     Indication: BIPOLAR DISORDER
     Dosage: 1800 MG/DAY; THEN REDUCED TO 900 MG/DAY
     Route: 065
  3. LITHIUM [Suspect]
     Indication: BIPOLAR DISORDER
     Dosage: 900 MG/DAY
     Route: 065
  4. QUETIAPINE [Suspect]
     Indication: BIPOLAR DISORDER
     Dosage: 900 MG/DAY
     Route: 065
  5. RISPERIDONE [Suspect]
     Indication: BIPOLAR DISORDER
     Dosage: 25MG
     Route: 065
  6. ARIPIPRAZOLE [Suspect]
     Indication: BIPOLAR DISORDER
     Dosage: 10 MG/DAY
     Route: 065
  7. PAROXETINE [Suspect]
     Indication: BIPOLAR DISORDER
     Dosage: 20 MG/DAY
     Route: 065
  8. VALPROIC ACID [Suspect]
     Indication: CONVULSION
     Dosage: UNKNOWN DOSE; THEN 800 MG/DAY MAINTENANCE
     Route: 065
  9. PHENYTOIN [Suspect]
     Indication: CONVULSION
     Route: 050
  10. MIDAZOLAM [Suspect]
     Indication: CONVULSION
     Route: 050
  11. LEVETIRACETAM [Suspect]
     Indication: CONVULSION
     Dosage: 2000 MG/DAY
     Route: 065

REACTIONS (2)
  - Toxicity to various agents [Recovered/Resolved with Sequelae]
  - Neurotoxicity [Recovered/Resolved with Sequelae]
